FAERS Safety Report 19307222 (Version 1)
Quarter: 2021Q2

REPORT INFORMATION
  Report Type: Report from Study
  Country: TW (occurrence: TW)
  Receive Date: 20210526
  Receipt Date: 20210526
  Transmission Date: 20210717
  Serious: Yes (Hospitalization, Other)
  Sender: FDA-Public Use
  Company Number: TW-INCYTE CORPORATION-2017IN006742

PATIENT

DRUGS (24)
  1. AUGMENTIN [Concomitant]
     Active Substance: AMOXICILLIN\CLAVULANATE POTASSIUM
     Indication: INFLUENZA
     Dosage: 1 G
     Route: 048
     Dates: start: 20170622, end: 20170626
  2. AUGMENTIN [Concomitant]
     Active Substance: AMOXICILLIN\CLAVULANATE POTASSIUM
     Dosage: 1 G
     Route: 048
     Dates: start: 20170629, end: 20170710
  3. LOPERAMIDE HCL [Concomitant]
     Active Substance: LOPERAMIDE HYDROCHLORIDE
     Indication: DIARRHOEA
     Dosage: 2 MG
     Route: 048
     Dates: start: 20170806, end: 20170807
  4. SYNORID [Concomitant]
     Indication: HYPERURICAEMIA
     Dosage: 100 MG
     Route: 065
     Dates: start: 20141204, end: 20180828
  5. JAKAVI [Suspect]
     Active Substance: RUXOLITINIB
     Dosage: 10 MG (1 DF, BID)
     Route: 048
     Dates: start: 20170629
  6. HYDREA [Concomitant]
     Active Substance: HYDROXYUREA
     Indication: MYELOFIBROSIS
     Dosage: 500 MG
     Route: 048
     Dates: start: 20160324, end: 20170517
  7. ALLERGAN [Concomitant]
     Active Substance: PAPAIN
     Indication: INFLUENZA
     Dosage: 60 MG
     Route: 048
     Dates: start: 20170629, end: 20170710
  8. DIPHENHYDRAMINE HCL [Concomitant]
     Active Substance: DIPHENHYDRAMINE HYDROCHLORIDE
     Indication: PROPHYLAXIS
  9. HYDREA [Concomitant]
     Active Substance: HYDROXYUREA
     Dosage: 500 MG
     Route: 048
     Dates: start: 20180104
  10. KASCOAL [Concomitant]
     Indication: DIARRHOEA
     Dosage: 40 MG
     Route: 048
     Dates: start: 20170814, end: 20170820
  11. JAKAVI [Suspect]
     Active Substance: RUXOLITINIB
     Indication: PRIMARY MYELOFIBROSIS
     Dosage: 10 MG (1 DF, BID)
     Route: 048
     Dates: start: 20170518, end: 20170615
  12. COMPOUND GLYCYRRHIZA MIXTURE SOLUTION [Concomitant]
     Indication: INFLUENZA
     Dosage: 5 ML
     Route: 065
     Dates: start: 20170629, end: 20170710
  13. FAMOTIDINE. [Concomitant]
     Active Substance: FAMOTIDINE
     Indication: GASTROINTESTINAL DISORDER PROPHYLAXIS
     Dosage: 20 MG
     Route: 048
     Dates: start: 20170622, end: 20170625
  14. NEXIUM I.V. [Concomitant]
     Active Substance: ESOMEPRAZOLE SODIUM
     Indication: PROPHYLAXIS AGAINST GASTROINTESTINAL ULCER
     Dosage: 40 MG
     Route: 048
     Dates: start: 20170805, end: 20170813
  15. ACETYLCYSTEIN [Concomitant]
     Active Substance: ACETYLCYSTEINE
     Indication: INFLUENZA
     Dosage: 600 MG
     Route: 065
     Dates: start: 20170622, end: 20170716
  16. AMPICILLIN [Concomitant]
     Active Substance: AMPICILLIN
     Indication: INFLUENZA
     Dosage: 1000 MG
     Route: 042
     Dates: start: 20170621, end: 20170622
  17. FLAGYL [METRONIDAZOLE BENZOATE] [Concomitant]
     Active Substance: METRONIDAZOLE BENZOATE
     Indication: DIARRHOEA
     Dosage: 500 MG
     Route: 065
     Dates: start: 20170831, end: 20170921
  18. MEDICON [DEXTROMETHORPHAN HYDROBROMIDE] [Concomitant]
     Active Substance: DEXTROMETHORPHAN HYDROBROMIDE
     Indication: INFLUENZA
     Dosage: 15 MG
     Route: 065
     Dates: start: 20170622, end: 20170625
  19. METOCLOPRAMIDE HCL [Concomitant]
     Active Substance: METOCLOPRAMIDE HYDROCHLORIDE
     Indication: GASTROINTESTINAL DISORDER PROPHYLAXIS
     Dosage: 10 MG
     Route: 042
     Dates: start: 20170621, end: 20170622
  20. JAKAVI [Suspect]
     Active Substance: RUXOLITINIB
     Indication: MYELOFIBROSIS
     Dosage: 20 MG (2 DF, BID)
     Route: 048
     Dates: start: 20170616, end: 20170628
  21. TAMIFLU [Concomitant]
     Active Substance: OSELTAMIVIR PHOSPHATE
     Indication: INFLUENZA
     Dosage: 75 MG
     Route: 048
     Dates: start: 20170621, end: 20170626
  22. DIPHENHYDRAMINE HCL [Concomitant]
     Active Substance: DIPHENHYDRAMINE HYDROCHLORIDE
     Indication: TRANSFUSION
     Dosage: 30 MG
     Route: 042
     Dates: start: 20170805, end: 20170806
  23. LEVOCETIRIZINE [Concomitant]
     Active Substance: LEVOCETIRIZINE
     Indication: INFLUENZA
     Dosage: 5 MG
     Route: 048
     Dates: start: 20170626, end: 20170629
  24. ZITHROMAX [Concomitant]
     Active Substance: AZITHROMYCIN DIHYDRATE
     Indication: INFLUENZA
     Dosage: 500 MG
     Route: 048
     Dates: start: 20170621, end: 20170622

REACTIONS (6)
  - Pyrexia [Recovered/Resolved]
  - Haemoglobin decreased [Recovering/Resolving]
  - Pneumonia [Recovered/Resolved with Sequelae]
  - Blood cholesterol increased [Not Recovered/Not Resolved]
  - Pyrexia [Recovered/Resolved with Sequelae]
  - Pneumonia [Recovered/Resolved with Sequelae]

NARRATIVE: CASE EVENT DATE: 20170805
